FAERS Safety Report 7548516-3 (Version None)
Quarter: 2011Q2

REPORT INFORMATION
  Report Type: 
  Country: None (occurrence: None)
  Receive Date: 20110608
  Receipt Date: 20110525
  Transmission Date: 20111010
  Serious: Yes (Death)
  Sender: FDA-Public Use
  Company Number: GGEL20110500620

PATIENT
  Sex: Female

DRUGS (4)
  1. CARBAMAZEPINE [Suspect]
     Indication: EPILEPSY
  2. SODIUM VALPROATE (VALPROIC ACID) (VALPROIC ACID) [Suspect]
     Indication: EPILEPSY
  3. PHENOBARBITAL TAB [Suspect]
     Indication: EPILEPSY
  4. TOPIRAMATE [Suspect]
     Indication: EPILEPSY
     Dosage: ORAL USE
     Route: 048

REACTIONS (1)
  - STATUS EPILEPTICUS [None]
